FAERS Safety Report 8050453-5 (Version None)
Quarter: 2012Q1

REPORT INFORMATION
  Report Type: 
  Country: None (occurrence: None)
  Receive Date: 20120117
  Receipt Date: 20111128
  Transmission Date: 20120608
  Serious: Yes (Other)
  Sender: FDA-Public Use
  Company Number: US-US-EMD SERONO, INC.-7069664

PATIENT
  Sex: Female
  Weight: 91 kg

DRUGS (16)
  1. EPZICOM [Concomitant]
  2. VITAMIN D [Concomitant]
  3. EGRIFTA [Suspect]
     Indication: LIPODYSTROPHY ACQUIRED
     Dates: start: 20110301, end: 20110501
  4. CLONIDINE [Concomitant]
  5. TRAMADOL HCL [Concomitant]
  6. NEURONTIN [Concomitant]
  7. PROZAC [Concomitant]
  8. PLAVIX [Concomitant]
  9. EGRIFTA [Suspect]
     Indication: LENTIVIRUS TEST POSITIVE
  10. SUSTIVA [Concomitant]
  11. ESTROGEN HORMONE [Concomitant]
  12. METOPROLOL TARTRATE [Concomitant]
  13. ISOSORBIDE DINITRATE [Concomitant]
  14. CRESTOR [Concomitant]
  15. COZAAR [Concomitant]
  16. NEXIUM [Concomitant]

REACTIONS (2)
  - WEIGHT DECREASED [None]
  - BREAST CANCER [None]
